FAERS Safety Report 5542567-6 (Version None)
Quarter: 2007Q4

REPORT INFORMATION
  Report Type: 
  Country: None (occurrence: None)
  Receive Date: 20071210
  Receipt Date: 20071130
  Transmission Date: 20080405
  Serious: Yes (Hospitalization)
  Sender: FDA-Public Use
  Company Number: HQWYE094129MAR07

PATIENT
  Sex: Male
  Weight: 59 kg

DRUGS (14)
  1. MYLOTARG [Suspect]
     Indication: ACUTE MYELOID LEUKAEMIA RECURRENT
     Route: 041
     Dates: start: 20070115, end: 20070115
  2. MYLOTARG [Suspect]
     Route: 041
     Dates: start: 20070129, end: 20070129
  3. ITRACONAZOLE [Concomitant]
     Indication: PROPHYLAXIS
     Route: 048
     Dates: start: 20070112, end: 20070202
  4. FAMOTIDINE [Concomitant]
     Indication: PROPHYLAXIS
     Route: 048
     Dates: start: 20070112, end: 20070202
  5. CIPROFLOXACIN [Concomitant]
     Indication: PROPHYLAXIS
     Route: 048
     Dates: start: 20070112, end: 20070213
  6. FUNGUARD [Concomitant]
     Indication: INFECTION
     Route: 041
     Dates: start: 20070203, end: 20070227
  7. BACTRIM [Concomitant]
     Indication: PROPHYLAXIS
     Route: 048
     Dates: start: 20070112, end: 20070227
  8. RISEDRONATE SODIUM [Concomitant]
     Indication: PROPHYLAXIS
     Route: 048
     Dates: start: 20070112, end: 20070130
  9. DALTEPARIN SODIUM [Concomitant]
     Indication: PROPHYLAXIS
     Dosage: 3 KU PER DAY
     Route: 041
     Dates: start: 20070115, end: 20070120
  10. MAGNESIUM HYDROXIDE TAB [Concomitant]
     Indication: ABDOMINAL PAIN UPPER
     Route: 048
     Dates: start: 20070120, end: 20070123
  11. EPINASTINE HYDROCHLORIDE [Concomitant]
     Indication: GRAFT VERSUS HOST DISEASE
     Route: 048
     Dates: start: 20070118, end: 20070131
  12. ALLORINE [Concomitant]
     Indication: PROPHYLAXIS
     Route: 048
     Dates: start: 20070114, end: 20070120
  13. ALLORINE [Concomitant]
     Route: 048
     Dates: start: 20070121, end: 20070208
  14. ZOVIRAX [Concomitant]
     Indication: PROPHYLAXIS
     Route: 048
     Dates: start: 20070112, end: 20070227

REACTIONS (6)
  - ANOREXIA [None]
  - GINGIVAL BLEEDING [None]
  - HEPATIC FUNCTION ABNORMAL [None]
  - NEUTROPHIL COUNT DECREASED [None]
  - PLATELET COUNT DECREASED [None]
  - SEPSIS [None]
